FAERS Safety Report 19402234 (Version 1)
Quarter: 2021Q2

REPORT INFORMATION
  Report Type: Spontaneous
  Country: US (occurrence: US)
  Receive Date: 20210610
  Receipt Date: 20210610
  Transmission Date: 20210717
  Serious: No
  Sender: FDA-Public Use
  Company Number: US-COLLEGIUM PHARMACEUTICAL, INC.-2021CGM00360

PATIENT
  Age: 55 Year
  Sex: Female
  Weight: 49.89 kg

DRUGS (4)
  1. XTAMPZA ER [Suspect]
     Active Substance: OXYCODONE
     Dosage: 27 MG, 2X/DAY
     Route: 048
     Dates: start: 20210308, end: 20210318
  2. HYDROCODONE [Concomitant]
     Active Substance: HYDROCODONE
     Dosage: ^10/325 X6^
  3. DICLOFENAC [Concomitant]
     Active Substance: DICLOFENAC
     Route: 061
  4. LIDODERM [Concomitant]
     Active Substance: LIDOCAINE
     Dosage: UNK, 12 HOURS ON
     Route: 061

REACTIONS (2)
  - Skin lesion [Not Recovered/Not Resolved]
  - Scab [Not Recovered/Not Resolved]

NARRATIVE: CASE EVENT DATE: 202103
